FAERS Safety Report 7111263-6 (Version None)
Quarter: 2010Q4

REPORT INFORMATION
  Report Type: 
  Country: None (occurrence: None)
  Receive Date: 20101118
  Receipt Date: 20101105
  Transmission Date: 20110411
  Serious: Yes (Death)
  Sender: FDA-Public Use
  Company Number: US-MYLANLABS-2010S1020753

PATIENT
  Age: 19 Year
  Sex: Male

DRUGS (1)
  1. LAMOTRIGINE [Suspect]
     Indication: OVERDOSE
     Route: 065

REACTIONS (8)
  - ATRIOVENTRICULAR BLOCK COMPLETE [None]
  - CONVULSION [None]
  - DISSEMINATED INTRAVASCULAR COAGULATION [None]
  - HYPOTENSION [None]
  - MULTI-ORGAN FAILURE [None]
  - OVERDOSE [None]
  - RENAL FAILURE [None]
  - TACHYCARDIA [None]
